FAERS Safety Report 20812418 (Version 7)
Quarter: 2022Q4

REPORT INFORMATION
  Report Type: Spontaneous
  Country: US (occurrence: US)
  Receive Date: 20220511
  Receipt Date: 20221130
  Transmission Date: 20230112
  Serious: No
  Sender: FDA-Public Use
  Company Number: US-BRISTOL-MYERS SQUIBB COMPANY-2022-025209

PATIENT
  Age: 80 Year
  Sex: Female

DRUGS (2)
  1. REVLIMID [Suspect]
     Active Substance: LENALIDOMIDE
     Indication: Diffuse large B-cell lymphoma
     Dosage: TAKE 1 CAPSULE BY MOUTH EVERY DAY FOR 21 DAYS ON THEN 7 DAYS OFF
     Route: 048
     Dates: start: 20220402
  2. REVLIMID [Suspect]
     Active Substance: LENALIDOMIDE
     Dosage: TAKE 1 CAPSULE BY MOUTH EVERY DAY FOR 21 DAYS ON THEN 7 DAYS OFF
     Route: 048
     Dates: start: 20220401

REACTIONS (14)
  - Rhinalgia [Unknown]
  - Dyspnoea [Unknown]
  - Urinary tract infection [Unknown]
  - Oral pain [Unknown]
  - Dizziness [Unknown]
  - Insomnia [Unknown]
  - Diarrhoea [Unknown]
  - Visual impairment [Unknown]
  - Intentional product use issue [Unknown]
  - Scab [Unknown]
  - Oral pain [Unknown]
  - Localised infection [Unknown]
  - Fungal infection [Not Recovered/Not Resolved]
  - Abdominal discomfort [Not Recovered/Not Resolved]
